FAERS Safety Report 16296243 (Version 7)
Quarter: 2022Q1

REPORT INFORMATION
  Report Type: Report from Study
  Country: ES (occurrence: None)
  Receive Date: 20190510
  Receipt Date: 20220205
  Transmission Date: 20220423
  Serious: Yes (Hospitalization, Other)
  Sender: FDA-Public Use
  Company Number: ES-ROCHE-2304011

PATIENT
  Age: 75 Year
  Sex: Female
  Weight: 73 kg

DRUGS (62)
  1. GLOFITAMAB [Suspect]
     Active Substance: GLOFITAMAB
     Indication: B-cell lymphoma
     Dosage: BEGINNING CYCLE 1, DAY 1, FOR UP TO 17 CYCLES?DATE OF MOST RECENT DOSE OF RO7082859 (CD20/C3 T-CELL
     Route: 042
     Dates: start: 20190411
  2. OBINUTUZUMAB [Suspect]
     Active Substance: OBINUTUZUMAB
     Indication: B-cell lymphoma
     Dosage: AT A FIXED DOSE 7 DAYS BEFORE THE FIRST DOSE OF RO7082859?DATE OF MOST RECENT DOSE OF OBINUTUZUMAB P
     Route: 042
     Dates: start: 20190404
  3. ATEZOLIZUMAB [Suspect]
     Active Substance: ATEZOLIZUMAB
     Indication: B-cell lymphoma
     Dosage: DATE OF MOST RECENT DOSE PRIOR TO SECOND OCCURRENCE AT 10.25
     Route: 041
     Dates: start: 20190502
  4. ATORVASTATIN [Concomitant]
     Active Substance: ATORVASTATIN
     Indication: Hypercholesterolaemia
     Dates: start: 1999, end: 20190410
  5. ATORVASTATIN [Concomitant]
     Active Substance: ATORVASTATIN
     Dates: start: 20190418, end: 20190430
  6. ATORVASTATIN [Concomitant]
     Active Substance: ATORVASTATIN
     Dates: start: 20190505, end: 20190521
  7. ATORVASTATIN [Concomitant]
     Active Substance: ATORVASTATIN
     Dates: start: 20190815, end: 20190903
  8. ATORVASTATIN [Concomitant]
     Active Substance: ATORVASTATIN
     Dates: start: 20190906
  9. ATORVASTATIN [Concomitant]
     Active Substance: ATORVASTATIN
     Dates: start: 20190705, end: 20190723
  10. ATORVASTATIN [Concomitant]
     Active Substance: ATORVASTATIN
     Dates: start: 20190726, end: 20190812
  11. ATORVASTATIN [Concomitant]
     Active Substance: ATORVASTATIN
     Dates: start: 20190526, end: 20190611
  12. ATORVASTATIN [Concomitant]
     Active Substance: ATORVASTATIN
     Dates: start: 20190615, end: 20190702
  13. ATORVASTATIN [Concomitant]
     Active Substance: ATORVASTATIN
     Dates: start: 1999, end: 20190410
  14. LEVOTHYROXINE [Concomitant]
     Active Substance: LEVOTHYROXINE
     Dates: start: 1993
  15. EPROSARTAN [Concomitant]
     Active Substance: EPROSARTAN
     Indication: Hypertension
     Dates: start: 2004, end: 20190403
  16. EPROSARTAN [Concomitant]
     Active Substance: EPROSARTAN
     Dates: start: 20190406, end: 20190410
  17. EPROSARTAN [Concomitant]
     Active Substance: EPROSARTAN
     Dates: start: 20190415, end: 20190430
  18. EPROSARTAN [Concomitant]
     Active Substance: EPROSARTAN
     Dates: start: 20190503, end: 20190521
  19. EPROSARTAN [Concomitant]
     Active Substance: EPROSARTAN
     Dates: start: 20190906
  20. EPROSARTAN [Concomitant]
     Active Substance: EPROSARTAN
     Dates: start: 20190726, end: 20190812
  21. EPROSARTAN [Concomitant]
     Active Substance: EPROSARTAN
     Dates: start: 20190815, end: 20190903
  22. EPROSARTAN [Concomitant]
     Active Substance: EPROSARTAN
     Dates: start: 20190615, end: 20190702
  23. EPROSARTAN [Concomitant]
     Active Substance: EPROSARTAN
     Dates: start: 20190705, end: 20190723
  24. EPROSARTAN [Concomitant]
     Active Substance: EPROSARTAN
     Dates: start: 20190503, end: 20190521
  25. EPROSARTAN [Concomitant]
     Active Substance: EPROSARTAN
     Dates: start: 20190526, end: 20190611
  26. EPROSARTAN [Concomitant]
     Active Substance: EPROSARTAN
     Dates: start: 20190415, end: 20190430
  27. LORAZEPAM [Concomitant]
     Active Substance: LORAZEPAM
     Indication: Insomnia
     Dates: start: 2018
  28. PREDNISONE [Concomitant]
     Active Substance: PREDNISONE
     Indication: Lymphoma
     Dates: end: 20190315
  29. ACETAMINOPHEN [Concomitant]
     Active Substance: ACETAMINOPHEN
     Indication: Back pain
     Dates: start: 20190403, end: 20190403
  30. ACETAMINOPHEN [Concomitant]
     Active Substance: ACETAMINOPHEN
     Indication: Carpal tunnel syndrome
     Dates: start: 2016
  31. ACETAMINOPHEN [Concomitant]
     Active Substance: ACETAMINOPHEN
     Route: 042
     Dates: start: 20190411, end: 20190411
  32. ACETAMINOPHEN [Concomitant]
     Active Substance: ACETAMINOPHEN
     Route: 042
     Dates: start: 20190404, end: 20190404
  33. ACETAMINOPHEN [Concomitant]
     Active Substance: ACETAMINOPHEN
     Dates: start: 20190405, end: 20190405
  34. ACETAMINOPHEN [Concomitant]
     Active Substance: ACETAMINOPHEN
     Route: 042
     Dates: start: 20190502, end: 20190502
  35. ACETAMINOPHEN [Concomitant]
     Active Substance: ACETAMINOPHEN
     Route: 042
     Dates: start: 20190405, end: 20190405
  36. GLUCOSALINE [Concomitant]
     Indication: Prophylaxis
     Dates: start: 20190403, end: 20190405
  37. SALINE [Concomitant]
     Active Substance: SODIUM CHLORIDE
     Indication: Prophylaxis
     Dates: start: 20190410, end: 20190416
  38. SALINE [Concomitant]
     Active Substance: SODIUM CHLORIDE
     Dates: start: 20190501, end: 20190505
  39. SALINE [Concomitant]
     Active Substance: SODIUM CHLORIDE
     Dates: start: 20190703, end: 20190705
  40. SALINE [Concomitant]
     Active Substance: SODIUM CHLORIDE
     Dates: start: 20190522, end: 20190525
  41. SALINE [Concomitant]
     Active Substance: SODIUM CHLORIDE
     Dates: start: 20190612, end: 20190614
  42. FUROSEMIDE [Concomitant]
     Active Substance: FUROSEMIDE
     Indication: Prophylaxis
     Dates: start: 20190413, end: 20190413
  43. OMEPRAZOLE [Concomitant]
     Active Substance: OMEPRAZOLE
     Indication: Hiatus hernia
     Dates: start: 2018, end: 20190410
  44. OMEPRAZOLE [Concomitant]
     Active Substance: OMEPRAZOLE
     Dates: start: 20190418, end: 20190430
  45. OMEPRAZOLE [Concomitant]
     Active Substance: OMEPRAZOLE
     Dates: start: 20190505, end: 20190521
  46. OMEPRAZOLE [Concomitant]
     Active Substance: OMEPRAZOLE
     Dates: start: 20190815, end: 20190903
  47. OMEPRAZOLE [Concomitant]
     Active Substance: OMEPRAZOLE
     Dates: start: 20190906
  48. OMEPRAZOLE [Concomitant]
     Active Substance: OMEPRAZOLE
     Dates: start: 20190726, end: 20190812
  49. OMEPRAZOLE [Concomitant]
     Active Substance: OMEPRAZOLE
     Dates: start: 20190615, end: 20190702
  50. OMEPRAZOLE [Concomitant]
     Active Substance: OMEPRAZOLE
     Dates: start: 20190526, end: 20190611
  51. ALLOPURINOL [Concomitant]
     Active Substance: ALLOPURINOL
     Indication: Hyperuricaemia
     Dates: start: 20190403, end: 20191218
  52. HIBOR [Concomitant]
     Indication: Device related thrombosis
     Dates: start: 20190410, end: 20191010
  53. POLARAMINE [Concomitant]
     Active Substance: DEXCHLORPHENIRAMINE MALEATE
     Indication: Rash
     Dates: start: 20190413, end: 20190413
  54. POLARAMINE [Concomitant]
     Active Substance: DEXCHLORPHENIRAMINE MALEATE
     Route: 042
     Dates: start: 20190404, end: 20190404
  55. POLARAMINE [Concomitant]
     Active Substance: DEXCHLORPHENIRAMINE MALEATE
     Route: 042
     Dates: start: 20190411, end: 20190411
  56. POLARAMINE [Concomitant]
     Active Substance: DEXCHLORPHENIRAMINE MALEATE
     Route: 042
     Dates: start: 20190405, end: 20190405
  57. POLARAMINE [Concomitant]
     Active Substance: DEXCHLORPHENIRAMINE MALEATE
     Route: 042
     Dates: start: 20190502, end: 20190502
  58. METHYLPREDNISOLONE [Concomitant]
     Active Substance: METHYLPREDNISOLONE
     Route: 042
     Dates: start: 20190411, end: 20190411
  59. METHYLPREDNISOLONE [Concomitant]
     Active Substance: METHYLPREDNISOLONE
     Route: 042
     Dates: start: 20190502, end: 20190502
  60. DEXAMETHASONE [Concomitant]
     Active Substance: DEXAMETHASONE
     Route: 042
     Dates: start: 20190404, end: 20190404
  61. DEXAMETHASONE [Concomitant]
     Active Substance: DEXAMETHASONE
     Route: 042
     Dates: start: 20190405, end: 20190405
  62. FUROSEMIDE [Concomitant]
     Active Substance: FUROSEMIDE
     Indication: Weight increased
     Dates: start: 20190503, end: 20190503

REACTIONS (2)
  - Cytokine release syndrome [Recovered/Resolved]
  - Cytokine release syndrome [Recovered/Resolved]

NARRATIVE: CASE EVENT DATE: 20190411
